FAERS Safety Report 13032402 (Version 2)
Quarter: 2017Q1

REPORT INFORMATION
  Report Type: Spontaneous
  Country: US (occurrence: US)
  Receive Date: 20161215
  Receipt Date: 20170224
  Transmission Date: 20170428
  Serious: Yes (Hospitalization)
  Sender: FDA-Public Use
  Company Number: US-BAYER-2016-236481

PATIENT
  Age: 26 Year
  Sex: Female
  Weight: 65.77 kg

DRUGS (1)
  1. MIRENA [Suspect]
     Active Substance: LEVONORGESTREL
     Indication: CONTRACEPTION
     Dosage: 20 MCG/24HR, CONT
     Route: 015
     Dates: start: 20091216, end: 20160804

REACTIONS (9)
  - Uterine perforation [Not Recovered/Not Resolved]
  - Depression [None]
  - Pain [Not Recovered/Not Resolved]
  - Anxiety [None]
  - Psychological trauma [None]
  - Device use issue [None]
  - Pelvic discomfort [Not Recovered/Not Resolved]
  - Device dislocation [Not Recovered/Not Resolved]
  - Infertility [None]

NARRATIVE: CASE EVENT DATE: 20160804
